FAERS Safety Report 7910507-8 (Version None)
Quarter: 2011Q4

REPORT INFORMATION
  Report Type: 
  Country: None (occurrence: None)
  Receive Date: 20111111
  Receipt Date: 20111101
  Transmission Date: 20120403
  Serious: Yes (Other)
  Sender: FDA-Public Use
  Company Number: PHFR2011IE06282

PATIENT
  Sex: Female

DRUGS (1)
  1. CLOZARIL [Suspect]
     Route: 048
     Dates: start: 20050404

REACTIONS (1)
  - TOOTH ABSCESS [None]
